FAERS Safety Report 7425849-2 (Version None)
Quarter: 2011Q2

REPORT INFORMATION
  Report Type: 
  Country: None (occurrence: None)
  Receive Date: 20110418
  Receipt Date: 20110418
  Transmission Date: 20111010
  Serious: No
  Sender: FDA-Public Use
  Company Number: None

PATIENT
  Age: 43 Year
  Sex: Male
  Weight: 75.2971 kg

DRUGS (1)
  1. LEVAQUIN [Suspect]
     Indication: BRONCHITIS
     Dosage: 1 TABLET DAILY 7-DAY CYCLE PO
     Route: 048
     Dates: start: 20101123, end: 20101129

REACTIONS (7)
  - OEDEMA [None]
  - UNEVALUABLE EVENT [None]
  - SWELLING [None]
  - HYPOAESTHESIA [None]
  - GASTROINTESTINAL DISORDER [None]
  - PAIN IN EXTREMITY [None]
  - MOBILITY DECREASED [None]
